FAERS Safety Report 6376186-9 (Version None)
Quarter: 2009Q3

REPORT INFORMATION
  Report Type: 
  Country: None (occurrence: None)
  Receive Date: 20090918
  Receipt Date: 20090902
  Transmission Date: 20100115
  Serious: Yes (Other)
  Sender: FDA-Public Use
  Company Number: 8051707

PATIENT
  Age: 18 Year
  Sex: Male

DRUGS (5)
  1. PREDNISOLONE SODIUM PHOSPHATE [Suspect]
  2. CYCLOSPORINE [Suspect]
     Indication: STEM CELL TRANSPLANT
  3. ALEMTUZUMAB [Concomitant]
  4. FLUDARABINE [Concomitant]
  5. MELPHALAN [Concomitant]

REACTIONS (5)
  - DIARRHOEA [None]
  - GASTROENTERITIS NOROVIRUS [None]
  - GRAFT VERSUS HOST DISEASE [None]
  - NAUSEA [None]
  - VOMITING [None]
